FAERS Safety Report 25446726 (Version 2)
Quarter: 2025Q4

REPORT INFORMATION
  Report Type: Spontaneous
  Country: US (occurrence: None)
  Receive Date: 20250617
  Receipt Date: 20251027
  Transmission Date: 20260118
  Serious: No
  Sender: UCB
  Company Number: US-UCBSA-2025028750

PATIENT
  Age: 45 Year

DRUGS (2)
  1. BIMZELX [Suspect]
     Active Substance: BIMEKIZUMAB-BKZX
     Indication: Psoriasis
     Dosage: 320 MILLIGRAM, EV 8 WEEKS
  2. Clobetasol Propionate External Cream [Concomitant]
     Indication: Product used for unknown indication
     Dosage: UNK, EXTERNAL SOLU

REACTIONS (2)
  - Psoriasis [Unknown]
  - Therapeutic response decreased [Unknown]
